FAERS Safety Report 16648871 (Version 2)
Quarter: 2019Q3

REPORT INFORMATION
  Report Type: Spontaneous
  Country: EG (occurrence: EG)
  Receive Date: 20190730
  Receipt Date: 20190809
  Transmission Date: 20191004
  Serious: Yes (Hospitalization, Disabling, Other)
  Sender: FDA-Public Use
  Company Number: EG-NOVOPROD-675328

PATIENT
  Age: 56 Year
  Sex: Male
  Weight: 95 kg

DRUGS (7)
  1. ASPOCID [Concomitant]
     Active Substance: ASPIRIN
     Indication: THROMBOSIS
     Dosage: 3 TABLETS PER DAY
     Route: 048
     Dates: start: 2011
  2. VASTAREL [Concomitant]
     Active Substance: TRIMETAZIDINE DIHYDROCHLORIDE
     Indication: VASODILATATION
     Dosage: 3 TABLET PER DAY
     Route: 048
     Dates: start: 2011
  3. ATOR 10 [Concomitant]
     Indication: HYPERCHOLESTEROLAEMIA
     Dosage: 1 TABLET PER DAY
     Route: 048
     Dates: start: 2011
  4. MIXTARD 30 HM PENFILL [Suspect]
     Active Substance: INSULIN HUMAN
     Indication: TYPE 2 DIABETES MELLITUS
     Dosage: 50 IU, QD(30 U/MORNING +20 U/NIGHT)
     Route: 058
     Dates: start: 20160206
  5. GLUCOPHAGE [Concomitant]
     Active Substance: METFORMIN HYDROCHLORIDE
     Indication: TYPE 2 DIABETES MELLITUS
     Dosage: 1 TABLET PER DAY, (SINCE 1 YEAR)
     Route: 048
  6. PREGAVALEX [Concomitant]
     Indication: NEUROPATHY PERIPHERAL
     Dosage: 1 CAPSULE PER DAY
     Route: 048
     Dates: start: 2011
  7. CAPOTEN [Concomitant]
     Active Substance: CAPTOPRIL
     Indication: HYPERTENSION
     Dosage: 2 TABLETS PER DAY, (SINCE 8 YEARS)
     Route: 048

REACTIONS (2)
  - Catheterisation cardiac [Not Recovered/Not Resolved]
  - Diabetic foot [Not Recovered/Not Resolved]

NARRATIVE: CASE EVENT DATE: 201805
